FAERS Safety Report 6138085-7 (Version None)
Quarter: 2009Q1

REPORT INFORMATION
  Report Type: 
  Country: None (occurrence: None)
  Receive Date: 20090327
  Receipt Date: 20090316
  Transmission Date: 20090719
  Serious: Yes (Hospitalization)
  Sender: FDA-Public Use
  Company Number: CFNT-330

PATIENT
  Age: 47 Year
  Sex: Female

DRUGS (6)
  1. MEIACT MS TABLET (CEFDITOREN PIVOXIL) [Suspect]
     Indication: INFLUENZA
     Dosage: BY MOUTH
  2. FAROM (FAROPENEM SODIUM HYDRATE) [Suspect]
     Indication: INFLUENZA
     Dosage: P.O.
     Route: 048
  3. ACETAMINOPHEN [Suspect]
     Indication: INFLUENZA
     Dosage: P.O.
     Route: 048
  4. TAMIFLU [Suspect]
     Indication: INFLUENZA
     Dosage: P.O.
     Route: 048
  5. GATIFLO (GATIFLOXACIN HYDRATE) [Suspect]
     Indication: INFLUENZA
     Dosage: P.O.
     Route: 048
  6. OPTIRAY 350 [Suspect]
     Indication: SCAN WITH CONTRAST
     Dosage: I.V.
     Route: 042

REACTIONS (4)
  - ARTHRALGIA [None]
  - MYALGIA [None]
  - PROTEINURIA [None]
  - TUBULOINTERSTITIAL NEPHRITIS [None]
